FAERS Safety Report 7658853-X (Version None)
Quarter: 2011Q3

REPORT INFORMATION
  Report Type: 
  Country: None (occurrence: None)
  Receive Date: 20110805
  Receipt Date: 20110803
  Transmission Date: 20111222
  Serious: Yes (Death, Other)
  Sender: FDA-Public Use
  Company Number: JP-SANOFI-AVENTIS-2011SA049733

PATIENT

DRUGS (2)
  1. CISPLATIN [Suspect]
     Indication: NON-SMALL CELL LUNG CANCER
     Route: 065
  2. DOCETAXEL [Suspect]
     Indication: NON-SMALL CELL LUNG CANCER
     Route: 065

REACTIONS (6)
  - ANAEMIA [None]
  - DEATH [None]
  - PNEUMONITIS [None]
  - DECREASED APPETITE [None]
  - FEBRILE NEUTROPENIA [None]
  - NEUTROPENIA [None]
